FAERS Safety Report 13768572 (Version 1)
Quarter: 2017Q3

REPORT INFORMATION
  Report Type: Spontaneous
  Country: US (occurrence: US)
  Receive Date: 20170719
  Receipt Date: 20170719
  Transmission Date: 20171127
  Serious: Yes (Other)
  Sender: FDA-Public Use
  Company Number: None

PATIENT
  Age: 44 Year
  Sex: Male
  Weight: 90 kg

DRUGS (6)
  1. QUETIAPINE ER [Suspect]
     Active Substance: QUETIAPINE
     Indication: DEPRESSION
     Dosage: ?          OTHER STRENGTH:MG;QUANTITY:30 TABLET(S);?
     Route: 048
     Dates: start: 20170703, end: 20170713
  2. BABY ASPIRIN [Concomitant]
     Active Substance: ASPIRIN
  3. MULTI VITAMIN [Concomitant]
     Active Substance: VITAMINS
  4. LUTIEN [Concomitant]
  5. SERTRALINE [Concomitant]
     Active Substance: SERTRALINE HYDROCHLORIDE
  6. PROTONIX [Concomitant]
     Active Substance: PANTOPRAZOLE SODIUM

REACTIONS (4)
  - Depression [None]
  - Product quality issue [None]
  - Condition aggravated [None]
  - Middle insomnia [None]

NARRATIVE: CASE EVENT DATE: 20170703
